FAERS Safety Report 5814537-1 (Version None)
Quarter: 2008Q3

REPORT INFORMATION
  Report Type: 
  Country: None (occurrence: None)
  Receive Date: 20080718
  Receipt Date: 20070730
  Transmission Date: 20090109
  Serious: No
  Sender: FDA-Public Use
  Company Number: US-KINGPHARMUSA00001-K200700959

PATIENT

DRUGS (12)
  1. LEVOXYL [Suspect]
     Indication: HYPOTHYROIDISM
     Dosage: UNK, QD
     Route: 048
     Dates: start: 19980101, end: 20050101
  2. LEVOXYL [Suspect]
     Dosage: 200 MCG, QD
     Route: 048
     Dates: start: 20050101
  3. WELLBUTRIN [Suspect]
     Indication: DEPRESSION
     Dosage: 100 MG, BID
     Route: 048
     Dates: start: 20070701
  4. PAIN MEDICATIONS [Suspect]
  5. OPANA ER [Concomitant]
     Indication: PAIN
     Dosage: 40 MG, BID
     Route: 048
  6. OPANA [Concomitant]
     Indication: PAIN
     Dosage: 10 MG, Q4H, 6 TIMES A DAY
     Route: 048
  7. SOMA [Concomitant]
     Dosage: 350 MG, QID
  8. MOBIC [Concomitant]
     Dosage: 7.5 MG, BID
  9. LYRICA [Concomitant]
     Dosage: 75 MG, TID
     Route: 048
  10. ATIVAN [Concomitant]
     Dosage: 1 MG, BID
     Route: 048
  11. RESTORIL   /00393701/ [Concomitant]
     Indication: INSOMNIA
     Dosage: 30 MG, QHS
     Route: 048
  12. RESTORIL   /00393701/ [Concomitant]
     Indication: SLEEP DISORDER

REACTIONS (6)
  - ALOPECIA [None]
  - BLOOD THYROID STIMULATING HORMONE INCREASED [None]
  - DRY SKIN [None]
  - OEDEMA PERIPHERAL [None]
  - SOMNOLENCE [None]
  - WEIGHT DECREASED [None]
